FAERS Safety Report 7767841-4 (Version None)
Quarter: 2011Q3

REPORT INFORMATION
  Report Type: 
  Country: None (occurrence: None)
  Receive Date: 20110922
  Receipt Date: 20110531
  Transmission Date: 20111222
  Serious: Yes (Hospitalization, Other)
  Sender: FDA-Public Use
  Company Number: US-ASTRAZENECA-2008UW14993

PATIENT
  Age: 421 Month
  Sex: Male
  Weight: 122.9 kg

DRUGS (30)
  1. SEROQUEL [Suspect]
     Route: 048
     Dates: end: 20080922
  2. UNIRETIC [Concomitant]
     Dosage: 7.5/12.5
     Dates: start: 20050311
  3. SEROQUEL [Suspect]
     Indication: INSOMNIA
     Route: 048
     Dates: start: 20041001
  4. SEROQUEL [Suspect]
     Route: 048
     Dates: start: 20050211
  5. MIRTAZAPINE [Concomitant]
     Dates: start: 20050309
  6. DICLOFENAC SODIUM [Concomitant]
     Indication: BACK PAIN
     Dates: start: 20080901
  7. SEROQUEL [Suspect]
     Indication: SLEEP DISORDER
     Route: 048
     Dates: start: 20041001
  8. SEROQUEL [Suspect]
     Route: 048
  9. OXYCODONE HCL AND ACETAMINOPHEN [Concomitant]
     Dosage: 5-325 MG
     Dates: start: 20050512
  10. MOBIC [Concomitant]
     Dates: start: 20050819
  11. LEVAQUIN [Concomitant]
  12. PROTONIX [Concomitant]
  13. HYDROCHLOROTHIAZIDE [Concomitant]
     Dates: start: 20050211
  14. CHERATUSSIN AC [Concomitant]
     Dates: start: 20050705
  15. GEODON [Concomitant]
     Dates: start: 20050819
  16. AVAPRO [Concomitant]
  17. CELEBREX [Concomitant]
     Dates: start: 20050223
  18. CLONAZEPAM [Concomitant]
     Dates: start: 20050628
  19. PENICILLIN VK [Concomitant]
     Dates: start: 20050518
  20. AMBIEN [Concomitant]
     Indication: INSOMNIA
     Dates: start: 20050211
  21. FLOMAX [Concomitant]
  22. LUNESTA [Concomitant]
     Dates: start: 20050513
  23. DOXYCYCLINE MHY [Concomitant]
     Dates: start: 20050812
  24. SEROQUEL [Suspect]
     Route: 048
  25. SEROQUEL [Suspect]
     Route: 048
     Dates: start: 20050211
  26. SEROQUEL [Suspect]
     Route: 048
     Dates: end: 20080922
  27. CYMBALTA [Concomitant]
  28. MIRAPEX [Concomitant]
  29. AMITRIPTYLINE HCL [Concomitant]
     Dates: start: 20050211
  30. ZYPREXA [Concomitant]
     Dates: start: 20050714

REACTIONS (6)
  - BACK PAIN [None]
  - ABDOMINAL PAIN LOWER [None]
  - TYPE 2 DIABETES MELLITUS [None]
  - WEIGHT INCREASED [None]
  - INFECTION [None]
  - TARDIVE DYSKINESIA [None]
